FAERS Safety Report 15905327 (Version 2)
Quarter: 2019Q1

REPORT INFORMATION
  Report Type: Report from Study
  Country: ZA (occurrence: ZA)
  Receive Date: 20190204
  Receipt Date: 20190215
  Transmission Date: 20190417
  Serious: Yes (Other)
  Sender: FDA-Public Use
  Company Number: PHHY2017ZA118129

PATIENT
  Sex: Female

DRUGS (2)
  1. CORTISONE [Suspect]
     Active Substance: CORTISONE\HYDROCORTISONE
     Indication: PRODUCT USED FOR UNKNOWN INDICATION
     Route: 065
  2. EXJADE [Suspect]
     Active Substance: DEFERASIROX
     Indication: APLASIA PURE RED CELL
     Dosage: 250 MG, QD
     Route: 065

REACTIONS (5)
  - Abdominal pain [Unknown]
  - Skin exfoliation [Not Recovered/Not Resolved]
  - Serum ferritin increased [Unknown]
  - Bone marrow failure [Unknown]
  - Eczema [Not Recovered/Not Resolved]
